FAERS Safety Report 11882965 (Version 1)
Quarter: 2015Q4

REPORT INFORMATION
  Report Type: Spontaneous
  Country: US (occurrence: US)
  Receive Date: 20151231
  Receipt Date: 20151231
  Transmission Date: 20160305
  Serious: Yes (Hospitalization)
  Sender: FDA-Public Use
  Company Number: US-BAYER-2015-496218

PATIENT
  Age: 89 Year
  Sex: Male

DRUGS (2)
  1. ACETYLSALICYLIC ACID (} 100 MG) [Suspect]
     Active Substance: ASPIRIN
     Indication: ISCHAEMIC CARDIOMYOPATHY
     Dosage: UNK
  2. CLOPIDOGREL [Suspect]
     Active Substance: CLOPIDOGREL BISULFATE
     Indication: ISCHAEMIC CARDIOMYOPATHY

REACTIONS (6)
  - Intestinal obstruction [None]
  - Colonic haematoma [None]
  - Haemorrhoidal haemorrhage [None]
  - Hypotension [None]
  - Urosepsis [None]
  - Labelled drug-drug interaction medication error [None]
